FAERS Safety Report 9683523 (Version 1)
Quarter: 2013Q4

REPORT INFORMATION
  Report Type: Spontaneous
  Country: KR (occurrence: KR)
  Receive Date: 20131112
  Receipt Date: 20131112
  Transmission Date: 20140711
  Serious: Yes (Hospitalization)
  Sender: FDA-Public Use
  Company Number: PHHY2013KR127527

PATIENT
  Age: 68 Year
  Sex: Female

DRUGS (7)
  1. CLOZAPINE [Suspect]
     Indication: SCHIZOPHRENIA
     Dosage: 200 MG, PER DAY
     Route: 048
  2. CLOZAPINE [Suspect]
     Dosage: 275 MG, PER DAY
     Route: 048
  3. ZOLPIDEM [Suspect]
     Dosage: 12.5 MG, DAILY
     Route: 048
  4. LORAZEPAM [Suspect]
     Dosage: 1 MG, DAILY
     Route: 048
  5. AMITRIPTYLINE HYDROCHLORIDE [Suspect]
     Dosage: 10 MG, DAILY
     Route: 048
  6. RISPERIDONE [Suspect]
     Indication: PSYCHOTIC DISORDER
     Dosage: 0.5 MG,DAILY
     Route: 048
  7. RISPERIDONE [Suspect]
     Indication: AGITATION

REACTIONS (15)
  - Asterixis [Recovered/Resolved]
  - Cognitive disorder [Unknown]
  - Restlessness [Recovering/Resolving]
  - Delusion [Recovering/Resolving]
  - Electroencephalogram abnormal [Unknown]
  - Agitation [Recovering/Resolving]
  - Joint instability [Unknown]
  - Viral upper respiratory tract infection [Unknown]
  - Drug level increased [Unknown]
  - Tremor [Recovering/Resolving]
  - Ataxia [Recovering/Resolving]
  - Disorientation [Recovering/Resolving]
  - Pyrexia [Unknown]
  - Cerebral atrophy [Unknown]
  - Drug ineffective [Unknown]
